FAERS Safety Report 9170868 (Version 1)
Quarter: 2013Q1

REPORT INFORMATION
  Report Type: Spontaneous
  Country: IT (occurrence: None)
  Receive Date: 20130312
  Receipt Date: 20130312
  Transmission Date: 20140127
  Serious: Yes (Hospitalization)
  Sender: FDA-Public Use
  Company Number: FK201300741

PATIENT
  Age: 39 Year
  Sex: Male

DRUGS (1)
  1. CEFTRIAXONE [Suspect]
     Indication: PRODUCT USED FOR UNKNOWN INDICATION
     Dosage: 1 DOSAGE FORMS, 1 IN 1 TOTAL, INTRAMUSCULAR
     Route: 030
     Dates: start: 20130204, end: 20130204

REACTIONS (3)
  - Pruritus [None]
  - Malaise [None]
  - Hypersensitivity [None]
